FAERS Safety Report 4873991-2 (Version None)
Quarter: 2006Q1

REPORT INFORMATION
  Report Type: 
  Country: None (occurrence: None)
  Receive Date: 20060106
  Receipt Date: 20060103
  Transmission Date: 20060701
  Serious: Yes (Hospitalization)
  Sender: FDA-Public Use
  Company Number: 2006CG00025

PATIENT
  Age: 23029 Day
  Sex: Male

DRUGS (3)
  1. IRESSA [Suspect]
     Indication: LUNG NEOPLASM MALIGNANT
     Route: 048
     Dates: start: 20051128
  2. CORTANCYL [Concomitant]
  3. STILNOX [Concomitant]

REACTIONS (2)
  - DIARRHOEA [None]
  - MALNUTRITION [None]
